FAERS Safety Report 10771694 (Version 1)
Quarter: 2015Q1

REPORT INFORMATION
  Report Type: Spontaneous
  Country: US (occurrence: US)
  Receive Date: 20150206
  Receipt Date: 20150206
  Transmission Date: 20150721
  Serious: No
  Sender: FDA-Public Use
  Company Number: US-GLAXOSMITHKLINE-US2014GSK049382

PATIENT
  Sex: Female

DRUGS (6)
  1. CEPHALEXIN. [Concomitant]
     Active Substance: CEPHALEXIN
  2. VALACYCLOVIR [Concomitant]
     Active Substance: VALACYCLOVIR HYDROCHLORIDE
  3. FOLIC ACID. [Concomitant]
     Active Substance: FOLIC ACID
  4. XARELTO [Concomitant]
     Active Substance: RIVAROXABAN
  5. OXYCODONE + APAP [Concomitant]
  6. TYKERB [Suspect]
     Active Substance: LAPATINIB DITOSYLATE
     Indication: OVARIAN CANCER
     Dosage: 1250 MG, QD
     Route: 065
     Dates: start: 20141119

REACTIONS (2)
  - Somnolence [Unknown]
  - Fatigue [Unknown]
